FAERS Safety Report 9223088 (Version 1)
Quarter: 2013Q2

REPORT INFORMATION
  Report Type: Spontaneous
  Country: US (occurrence: None)
  Receive Date: 20130409
  Receipt Date: 20130409
  Transmission Date: 20140414
  Serious: Yes (Other)
  Sender: FDA-Public Use
  Company Number: None

PATIENT
  Age: 76 Year
  Sex: Female
  Weight: 77.11 kg

DRUGS (3)
  1. LORATIDINE [Suspect]
     Dosage: 1 PILL 10 MG 1 X DAY ?FOR 6 TO 8 WKS JAN-FEB 2013
     Dates: start: 201301, end: 201302
  2. LORATIDINE [Suspect]
     Dosage: 1 PILL 10 MG 1 X DAY ?FOR 6 TO 8 WKS JAN-FEB 2013
     Dates: start: 201301, end: 201302
  3. EQUATE [Suspect]

REACTIONS (1)
  - Arrhythmia [None]
